FAERS Safety Report 7313017-4 (Version None)
Quarter: 2011Q1

REPORT INFORMATION
  Report Type: 
  Country: None (occurrence: None)
  Receive Date: 20110225
  Receipt Date: 20110214
  Transmission Date: 20110831
  Serious: Yes (Hospitalization)
  Sender: FDA-Public Use
  Company Number: US-BIOGENIDEC-2011BI002097

PATIENT
  Age: 36 Year
  Sex: Male

DRUGS (1)
  1. TYSABRI [Suspect]
     Indication: MULTIPLE SCLEROSIS
     Route: 042
     Dates: start: 20100223

REACTIONS (8)
  - SECRETION DISCHARGE [None]
  - ARTHRALGIA [None]
  - DYSURIA [None]
  - CELLULITIS [None]
  - RENAL NEOPLASM [None]
  - OXYGEN SATURATION DECREASED [None]
  - INFECTION [None]
  - MULTIPLE SCLEROSIS RELAPSE [None]
